FAERS Safety Report 23638820 (Version 2)
Quarter: 2024Q2

REPORT INFORMATION
  Report Type: Spontaneous
  Country: DE (occurrence: DE)
  Receive Date: 20240315
  Receipt Date: 20240528
  Transmission Date: 20240715
  Serious: Yes (Death, Life-Threatening, Hospitalization, Other)
  Sender: FDA-Public Use
  Company Number: DE-DCGMA-24202909

PATIENT
  Age: 71 Year
  Sex: Female
  Weight: 36 kg

DRUGS (3)
  1. KEYTRUDA [Suspect]
     Active Substance: PEMBROLIZUMAB
     Indication: Neoplasm malignant
     Dosage: 200 MILLIGRAM
     Route: 042
     Dates: start: 20231002, end: 20231002
  2. CARBOPLATIN [Concomitant]
     Active Substance: CARBOPLATIN
     Dosage: 360 MILLIGRAM
     Route: 042
     Dates: start: 20231002, end: 20231002
  3. ALIMTA [Concomitant]
     Active Substance: PEMETREXED DISODIUM
     Dosage: 700 MILLIGRAM
     Route: 042
     Dates: start: 20231002, end: 20231002

REACTIONS (3)
  - Immune-mediated hepatitis [Unknown]
  - Aortic thrombosis [Fatal]
  - Vena cava thrombosis [Fatal]

NARRATIVE: CASE EVENT DATE: 20231208
